FAERS Safety Report 9188837 (Version 1)
Quarter: 2013Q1

REPORT INFORMATION
  Report Type: Spontaneous
  Country: US (occurrence: US)
  Receive Date: 20130326
  Receipt Date: 20130326
  Transmission Date: 20140127
  Serious: No
  Sender: FDA-Public Use
  Company Number: US-PFIZER INC-2013096427

PATIENT
  Age: 59 Year
  Sex: Female
  Weight: 53.06 kg

DRUGS (4)
  1. NEURONTIN [Suspect]
     Indication: PAIN IN EXTREMITY
     Dosage: 300 MG, 1X/DAY
     Dates: start: 201302
  2. NEURONTIN [Suspect]
     Dosage: 300 MG, 2X/DAY
     Dates: end: 201303
  3. VICODIN [Suspect]
     Dosage: UNK
  4. TOPOROL [Concomitant]
     Indication: BLOOD PRESSURE ABNORMAL
     Dosage: 25 MG, 2X/DAY

REACTIONS (3)
  - Drug ineffective [Unknown]
  - Hyperphagia [Recovering/Resolving]
  - Constipation [Unknown]
